FAERS Safety Report 17842152 (Version 1)
Quarter: 2020Q2

REPORT INFORMATION
  Report Type: Spontaneous
  Country: CA (occurrence: CA)
  Receive Date: 20200529
  Receipt Date: 20200529
  Transmission Date: 20200714
  Serious: Yes (Other)
  Sender: FDA-Public Use
  Company Number: CA-TEVA-2020-CA-1242434

PATIENT
  Age: 68 Year
  Sex: Female

DRUGS (8)
  1. VITAMIN D [ERGOCALCIFEROL] [Concomitant]
     Active Substance: ERGOCALCIFEROL
  2. COD LIVER OIL [Concomitant]
     Active Substance: COD LIVER OIL
  3. METFORMIN [Concomitant]
     Active Substance: METFORMIN HYDROCHLORIDE
  4. ACETAMINOPHEN. [Concomitant]
     Active Substance: ACETAMINOPHEN
  5. MELOXICAM. [Concomitant]
     Active Substance: MELOXICAM
  6. PANTOPRAZOLE [Concomitant]
     Active Substance: PANTOPRAZOLE
  7. BIOTIN [Concomitant]
     Active Substance: BIOTIN
  8. PACLITAXEL. [Suspect]
     Active Substance: PACLITAXEL
     Indication: ENDOMETRIAL CANCER
     Route: 042

REACTIONS (4)
  - Off label use [Recovered/Resolved]
  - Back pain [Recovered/Resolved]
  - Product use in unapproved indication [Recovered/Resolved]
  - Chest discomfort [Recovered/Resolved]
